FAERS Safety Report 11860299 (Version 2)
Quarter: 2016Q1

REPORT INFORMATION
  Report Type: Spontaneous
  Country: CH (occurrence: CH)
  Receive Date: 20151222
  Receipt Date: 20160202
  Transmission Date: 20160526
  Serious: Yes (Life-Threatening)
  Sender: FDA-Public Use
  Company Number: CH-PFIZER INC-2015451498

PATIENT
  Age: 66 Year
  Sex: Male
  Weight: 77 kg

DRUGS (6)
  1. NORVASC [Suspect]
     Active Substance: AMLODIPINE BESYLATE
     Indication: HYPERTENSION
     Dosage: 5 MG, 1X/DAY
     Dates: start: 2009, end: 20140228
  2. NORVASC [Suspect]
     Active Substance: AMLODIPINE BESYLATE
     Dosage: 5 UNK, UNK
     Dates: start: 20140407, end: 20140617
  3. CETIRIZIN SPIRIG [Concomitant]
     Indication: PRURITUS
     Dosage: 10 MG 1XDAY
     Route: 048
     Dates: start: 2011, end: 20140721
  4. ROFERON-A [Concomitant]
     Active Substance: INTERFERON ALFA-2A
     Indication: MYCOSIS FUNGOIDES
     Dosage: 600000 IU
  5. RASILEZ [Concomitant]
     Active Substance: ALISKIREN
     Indication: HYPERTENSION
     Dosage: 300 MG 1XDAY
     Route: 048
     Dates: start: 2009
  6. MELADININE /00384001/ [Suspect]
     Active Substance: METHOXSALEN
     Dosage: 30 MG/APPLICATION, 3/WEEK
     Dates: start: 20140204, end: 20140721

REACTIONS (1)
  - Skin burning sensation [Recovered/Resolved]

NARRATIVE: CASE EVENT DATE: 20140228
